FAERS Safety Report 4485259-7 (Version None)
Quarter: 2004Q4

REPORT INFORMATION
  Report Type: 
  Country: None (occurrence: None)
  Receive Date: 20041021
  Receipt Date: 20041006
  Transmission Date: 20050328
  Serious: Yes (Hospitalization)
  Sender: FDA-Public Use
  Company Number: 200407300

PATIENT
  Age: 73 Year
  Sex: Male
  Weight: 76.2043 kg

DRUGS (13)
  1. BOTOX PURIFIED NEUROTOXIN COMPLEX [Suspect]
     Indication: BLEPHAROSPASM
     Dosage: 60 UNITS PRN IM
     Route: 030
     Dates: end: 20040728
  2. ATENOLOL [Concomitant]
  3. MAXZIDE [Concomitant]
  4. MATRIX [Concomitant]
  5. CELEBREX [Concomitant]
  6. TYLENOL [Concomitant]
  7. ASPIRIN [Concomitant]
  8. OMEGA-3 [Concomitant]
  9. VITAMIN E, C AND A [Concomitant]
  10. VITAMIN C POWDER [Concomitant]
  11. MULTI-VITAMINS [Concomitant]
  12. VITAMIN B SUPER B [Concomitant]
  13. NEXIUM [Concomitant]

REACTIONS (49)
  - ABDOMINAL DISCOMFORT [None]
  - ABDOMINAL DISTENSION [None]
  - ANOREXIA [None]
  - ANTINUCLEAR ANTIBODY POSITIVE [None]
  - ANXIETY [None]
  - ARTERIOSCLEROSIS [None]
  - ARTHRALGIA [None]
  - ASTHENIA [None]
  - BLOOD SODIUM DECREASED [None]
  - BURSITIS [None]
  - CHEST DISCOMFORT [None]
  - CHILLS [None]
  - COLONIC POLYP [None]
  - COUGH [None]
  - DEHYDRATION [None]
  - DISTURBANCE IN ATTENTION [None]
  - DIZZINESS [None]
  - DRUG HYPERSENSITIVITY [None]
  - EYELID PTOSIS [None]
  - FEELING COLD [None]
  - GASTRITIS [None]
  - GASTROOESOPHAGEAL REFLUX DISEASE [None]
  - HAEMORRHOIDS [None]
  - HIATUS HERNIA [None]
  - HYPERCHOLESTEROLAEMIA [None]
  - HYPERTENSION [None]
  - HYPERVENTILATION [None]
  - IMPAIRED WORK ABILITY [None]
  - INFLUENZA LIKE ILLNESS [None]
  - IRRITABLE BOWEL SYNDROME [None]
  - LACRIMATION INCREASED [None]
  - MUSCLE CRAMP [None]
  - MYALGIA [None]
  - NASAL CONGESTION [None]
  - NASOPHARYNGEAL DISORDER [None]
  - NAUSEA [None]
  - NO REACTION ON PREVIOUS EXPOSURE TO DRUG [None]
  - PCO2 DECREASED [None]
  - PYREXIA [None]
  - RADICULOPATHY [None]
  - RASH [None]
  - RENAL FAILURE ACUTE [None]
  - RHINITIS ALLERGIC [None]
  - SINUS CONGESTION [None]
  - SPEECH DISORDER [None]
  - TOOTH EXTRACTION [None]
  - TUBULOINTERSTITIAL NEPHRITIS [None]
  - VISION BLURRED [None]
  - WEIGHT DECREASED [None]
